FAERS Safety Report 14431716 (Version 1)
Quarter: 2018Q1

REPORT INFORMATION
  Report Type: Spontaneous
  Country: AU (occurrence: AU)
  Receive Date: 20180124
  Receipt Date: 20180124
  Transmission Date: 20180509
  Serious: Yes (Life-Threatening)
  Sender: FDA-Public Use
  Company Number: AU-LPDUSPRD-20180067

PATIENT
  Age: 74 Year
  Sex: Male

DRUGS (1)
  1. FERINJECT [Suspect]
     Active Substance: FERRIC CARBOXYMALTOSE
     Dosage: UNKNOWN
     Route: 042
     Dates: start: 20170117

REACTIONS (7)
  - Vomiting [Unknown]
  - Hypoxia [Unknown]
  - Confusional state [Unknown]
  - Pyrexia [Unknown]
  - Tachypnoea [Unknown]
  - Pleuritic pain [Unknown]
  - Dyspnoea [Unknown]

NARRATIVE: CASE EVENT DATE: 20170117
